FAERS Safety Report 16024910 (Version 3)
Quarter: 2019Q1

REPORT INFORMATION
  Report Type: Spontaneous
  Country: CN (occurrence: CN)
  Receive Date: 20190301
  Receipt Date: 20190315
  Transmission Date: 20190418
  Serious: Yes (Other)
  Sender: FDA-Public Use
  Company Number: CN-009507513-1902CHN008532

PATIENT
  Age: 45 Year
  Sex: Female

DRUGS (2)
  1. DIPROSPAN [Suspect]
     Active Substance: BETAMETHASONE DIPROPIONATE\BETAMETHASONE SODIUM PHOSPHATE
     Indication: INTERVERTEBRAL DISC PROTRUSION
     Dosage: 7 MILLIGRAM
  2. LIDOCAINE. [Suspect]
     Active Substance: LIDOCAINE
     Indication: INTERVERTEBRAL DISC PROTRUSION
     Dosage: 60 MILLIGRAM

REACTIONS (1)
  - Incorrect route of product administration [Unknown]
